FAERS Safety Report 5494687-2 (Version None)
Quarter: 2007Q4

REPORT INFORMATION
  Report Type: 
  Country: None (occurrence: None)
  Receive Date: 20071024
  Receipt Date: 20071012
  Transmission Date: 20080405
  Serious: Yes (Other)
  Sender: FDA-Public Use
  Company Number: JP-ROCHE-522574

PATIENT
  Age: 58 Year
  Sex: Male

DRUGS (2)
  1. COPEGUS [Suspect]
     Dosage: 1200 MG DIVIDED INTO 2 DOSES.
     Route: 048
     Dates: start: 20070816, end: 20070830
  2. PEGASYS [Suspect]
     Route: 058
     Dates: start: 20070816, end: 20070830

REACTIONS (1)
  - DEMENTIA [None]
